FAERS Safety Report 5583925-3 (Version None)
Quarter: 2008Q1

REPORT INFORMATION
  Report Type: 
  Country: None (occurrence: None)
  Receive Date: 20080103
  Receipt Date: 20071221
  Transmission Date: 20080703
  Serious: Yes (Other)
  Sender: FDA-Public Use
  Company Number: 2007S1012942

PATIENT
  Age: 38 Year
  Sex: Female
  Weight: 56.6996 kg

DRUGS (10)
  1. PHENYTEK [Suspect]
     Indication: CONVULSION
     Dosage: 200 MG;AT BEDTIME;ORAL
     Route: 048
     Dates: start: 20070601, end: 20070919
  2. WARFARIN SODIUM [Concomitant]
  3. CELLCEPT [Concomitant]
  4. PROGRAF [Concomitant]
  5. PREDNISONE TAB [Concomitant]
  6. NORVASC [Concomitant]
  7. LAMICTAL [Concomitant]
  8. KEPPRA [Concomitant]
  9. FERROUS SULFATE [Concomitant]
  10. MAGNESIUM OXIDE [Concomitant]

REACTIONS (6)
  - ANTICONVULSANT DRUG LEVEL BELOW THERAPEUTIC [None]
  - GRAND MAL CONVULSION [None]
  - HEART RATE INCREASED [None]
  - PALPITATIONS [None]
  - POSTICTAL STATE [None]
  - RETCHING [None]
